FAERS Safety Report 20590235 (Version 1)
Quarter: 2022Q1

REPORT INFORMATION
  Report Type: Spontaneous
  Country: CN (occurrence: CN)
  Receive Date: 20220314
  Receipt Date: 20220314
  Transmission Date: 20220423
  Serious: Yes (Other)
  Sender: FDA-Public Use
  Company Number: CN-NOVARTISPH-NVSC2022CN057614

PATIENT

DRUGS (11)
  1. OXCARBAZEPINE [Suspect]
     Active Substance: OXCARBAZEPINE
     Indication: Herpes simplex encephalitis
     Dosage: 10 MG, QD INITIAL DOSE
     Route: 048
  2. OXCARBAZEPINE [Suspect]
     Active Substance: OXCARBAZEPINE
     Indication: Epilepsy
     Dosage: INCREASED BY 10 MG/KG/D AFTER 7 DAYS
     Route: 048
  3. OXCARBAZEPINE [Suspect]
     Active Substance: OXCARBAZEPINE
     Dosage: MAINTAINED AT 30-40 MG/KG, BID
     Route: 048
  4. ACYCLOVIR [Suspect]
     Active Substance: ACYCLOVIR
     Indication: Herpes simplex encephalitis
     Dosage: 10 MG/KG, TID FOR MORE THAN HOUR
     Route: 042
  5. ACYCLOVIR [Suspect]
     Active Substance: ACYCLOVIR
     Indication: Epilepsy
  6. SODIUM CHLORIDE [Suspect]
     Active Substance: SODIUM CHLORIDE
     Indication: Epilepsy
     Dosage: 100 ML, TID FOR MORE THAN 1 HOUR
     Route: 042
  7. SODIUM CHLORIDE [Suspect]
     Active Substance: SODIUM CHLORIDE
     Indication: Herpes simplex encephalitis
  8. DEXAMETHASONE [Concomitant]
     Active Substance: DEXAMETHASONE
     Indication: Acid base balance
     Dosage: UNK
     Route: 065
  9. DEXAMETHASONE [Concomitant]
     Active Substance: DEXAMETHASONE
     Indication: Infection prophylaxis
  10. MANNITOL [Concomitant]
     Active Substance: MANNITOL
     Indication: Acid base balance
     Dosage: UNK
     Route: 065
  11. MANNITOL [Concomitant]
     Active Substance: MANNITOL
     Indication: Infection prophylaxis

REACTIONS (1)
  - Hyperpyrexia [Unknown]
